FAERS Safety Report 5201179-4 (Version None)
Quarter: 2007Q1

REPORT INFORMATION
  Report Type: 
  Country: None (occurrence: None)
  Receive Date: 20070108
  Receipt Date: 20061227
  Transmission Date: 20070707
  Serious: Yes (Other)
  Sender: FDA-Public Use
  Company Number: 2006GB02397

PATIENT
  Age: 57 Year
  Sex: Female
  Weight: 67 kg

DRUGS (1)
  1. LISINOPRIL [Suspect]
     Route: 048
     Dates: start: 20040311, end: 20061019

REACTIONS (2)
  - ANGIOEDEMA [None]
  - LOCAL REACTION [None]
